FAERS Safety Report 9615847 (Version 1)
Quarter: 2013Q4

REPORT INFORMATION
  Report Type: Spontaneous
  Country: US (occurrence: None)
  Receive Date: 20131010
  Receipt Date: 20131010
  Transmission Date: 20140711
  Serious: Yes (Disabling)
  Sender: FDA-Public Use
  Company Number: None

PATIENT
  Age: 49 Year
  Sex: Female
  Weight: 61.24 kg

DRUGS (1)
  1. SPIRONOLACTONE [Suspect]
     Indication: BLOOD TESTOSTERONE FREE ABNORMAL
     Dosage: 1 TABLET, TWICE DAILY, TAKEN BY MOUTH
     Route: 048
     Dates: start: 20130815, end: 20131007

REACTIONS (6)
  - Product quality issue [None]
  - Drug ineffective [None]
  - Product substitution issue [None]
  - Androgenetic alopecia [None]
  - Acne [None]
  - Seborrhoea [None]
